FAERS Safety Report 16489715 (Version 1)
Quarter: 2019Q2

REPORT INFORMATION
  Report Type: Spontaneous
  Country: US (occurrence: US)
  Receive Date: 20190628
  Receipt Date: 20190628
  Transmission Date: 20190711
  Serious: No
  Sender: FDA-Public Use
  Company Number: US-TEVA-2019-US-1058692

PATIENT
  Sex: Male

DRUGS (1)
  1. CARBIDOPA AND LEVODOPA [Suspect]
     Active Substance: CARBIDOPA\LEVODOPA
     Indication: PARKINSON^S DISEASE
     Dosage: CARBIDOPA 25 MG / LEVODOPA 100 MG, TABLET 3 TIMES A DAY
     Route: 065

REACTIONS (5)
  - Muscle rigidity [Unknown]
  - Therapeutic product effect decreased [Unknown]
  - Tremor [Unknown]
  - Dystonia [Unknown]
  - Wrong technique in product usage process [Unknown]
